FAERS Safety Report 16057087 (Version 1)
Quarter: 2019Q1

REPORT INFORMATION
  Report Type: Spontaneous
  Country: US (occurrence: US)
  Receive Date: 20190209
  Receipt Date: 20190209
  Transmission Date: 20190418
  Serious: Yes (Hospitalization)
  Sender: FDA-Public Use
  Company Number: None

PATIENT
  Age: 34 Year
  Sex: Female

DRUGS (27)
  1. CLIMARA [Concomitant]
     Active Substance: ESTRADIOL
  2. TYLENOL [Concomitant]
     Active Substance: ACETAMINOPHEN
  3. PREDNISONE. [Concomitant]
     Active Substance: PREDNISONE
  4. MEDROXYPROGESTERONE [Concomitant]
     Active Substance: MEDROXYPROGESTERONE
  5. OMEGA 3 FISH OIL [Concomitant]
     Active Substance: FISH OIL\OMEGA-3 FATTY ACIDS
  6. POTASSIUM CHLORIDE. [Concomitant]
     Active Substance: POTASSIUM CHLORIDE
  7. ATENOLOL. [Concomitant]
     Active Substance: ATENOLOL
  8. SPIRONOLACTONE. [Concomitant]
     Active Substance: SPIRONOLACTONE
  9. OXYCODONE [Concomitant]
     Active Substance: OXYCODONE
  10. DULOXETINE. [Concomitant]
     Active Substance: DULOXETINE
  11. MONTELUKAST [Concomitant]
     Active Substance: MONTELUKAST SODIUM
  12. VIATMIN D3 [Concomitant]
  13. MIDODRINE [Concomitant]
     Active Substance: MIDODRINE
  14. PANTOPRAZOLE [Concomitant]
     Active Substance: PANTOPRAZOLE
  15. BUMETANIDE. [Concomitant]
     Active Substance: BUMETANIDE
  16. MVI [Concomitant]
     Active Substance: VITAMINS
  17. CALCIUM CARBONATE. [Concomitant]
     Active Substance: CALCIUM CARBONATE
  18. SILDENAFIL. [Concomitant]
     Active Substance: SILDENAFIL
  19. ESGIC [Concomitant]
     Active Substance: ACETAMINOPHEN\BUTALBITAL\CAFFEINE
  20. LEVOTHYROXINE. [Concomitant]
     Active Substance: LEVOTHYROXINE
  21. NARCAN [Concomitant]
     Active Substance: NALOXONE HYDROCHLORIDE
  22. CETIRIZINE [Concomitant]
     Active Substance: CETIRIZINE HYDROCHLORIDE
  23. DIAZEPAM. [Concomitant]
     Active Substance: DIAZEPAM
  24. GABAPENTIN. [Concomitant]
     Active Substance: GABAPENTIN
  25. OPSUMIT [Suspect]
     Active Substance: MACITENTAN
     Indication: PULMONARY ARTERIAL HYPERTENSION
     Route: 048
     Dates: start: 201805
  26. MAGNESIUM OXIDE. [Concomitant]
     Active Substance: MAGNESIUM OXIDE
  27. OLANZAPINE. [Concomitant]
     Active Substance: OLANZAPINE

REACTIONS (5)
  - Hypokalaemia [None]
  - Nausea [None]
  - Dehydration [None]
  - Pulmonary hypertension [None]
  - Vomiting [None]

NARRATIVE: CASE EVENT DATE: 20190205
